FAERS Safety Report 4477534-7 (Version None)
Quarter: 2004Q4

REPORT INFORMATION
  Report Type: 
  Country: None (occurrence: None)
  Receive Date: 20041013
  Receipt Date: 20040927
  Transmission Date: 20050328
  Serious: Yes (Hospitalization)
  Sender: FDA-Public Use
  Company Number: JP_040904442

PATIENT
  Age: 50 Year
  Sex: Female
  Weight: 35 kg

DRUGS (4)
  1. ZYPREXA [Suspect]
     Indication: SCHIZOPHRENIA
     Dosage: 5 MG DAY
     Route: 048
     Dates: start: 20040816, end: 20040817
  2. RISPERDAL [Concomitant]
  3. AKINETON [Concomitant]
  4. LENDORM [Concomitant]

REACTIONS (3)
  - ABNORMAL BEHAVIOUR [None]
  - ABNORMAL SLEEP-RELATED EVENT [None]
  - AMNESIA [None]
